FAERS Safety Report 11036929 (Version 1)
Quarter: 2015Q2

REPORT INFORMATION
  Report Type: Spontaneous
  Country: US (occurrence: US)
  Receive Date: 20150416
  Receipt Date: 20150416
  Transmission Date: 20150821
  Serious: No
  Sender: FDA-Public Use
  Company Number: US-009507513-1504USA002767

PATIENT
  Age: 55 Year
  Sex: Male

DRUGS (2)
  1. BELSOMRA [Suspect]
     Active Substance: SUVOREXANT
     Dosage: SPLIT TABLET IN HALF
     Route: 048
     Dates: start: 20150404, end: 20150404
  2. BELSOMRA [Suspect]
     Active Substance: SUVOREXANT
     Indication: INSOMNIA
     Dosage: 10 MG TABLET, ONCE BEFORE BEDTIME DAILY
     Route: 048
     Dates: start: 20150325, end: 20150325

REACTIONS (5)
  - Drug ineffective [Unknown]
  - Wrong technique in drug usage process [Unknown]
  - Head discomfort [Unknown]
  - Head discomfort [Unknown]
  - Drug ineffective [Unknown]

NARRATIVE: CASE EVENT DATE: 20150325
